FAERS Safety Report 17806864 (Version 1)
Quarter: 2020Q2

REPORT INFORMATION
  Report Type: Spontaneous
  Country: US (occurrence: US)
  Receive Date: 20200519
  Receipt Date: 20200519
  Transmission Date: 20200714
  Serious: Yes (Life-Threatening, Hospitalization, Disabling, Other)
  Sender: FDA-Public Use
  Company Number: None

PATIENT
  Age: 45 Year
  Sex: Female
  Weight: 67.5 kg

DRUGS (7)
  1. NORCO [Suspect]
     Active Substance: ACETAMINOPHEN\HYDROCODONE BITARTRATE
  2. SUBOXONE [Suspect]
     Active Substance: BUPRENORPHINE HYDROCHLORIDE\NALOXONE HYDROCHLORIDE
  3. VICODIN [Suspect]
     Active Substance: ACETAMINOPHEN\HYDROCODONE BITARTRATE
     Indication: BACK PAIN
     Route: 048
     Dates: start: 19960101, end: 20100501
  4. OXYCODONE [Suspect]
     Active Substance: OXYCODONE
  5. VICODIN [Suspect]
     Active Substance: ACETAMINOPHEN\HYDROCODONE BITARTRATE
     Indication: SCOLIOSIS
     Route: 048
     Dates: start: 19960101, end: 20100501
  6. HYDROCODONE [Suspect]
     Active Substance: HYDROCODONE
  7. CODEINE [Suspect]
     Active Substance: CODEINE

REACTIONS (17)
  - Suicide attempt [None]
  - Drug resistance [None]
  - Hallucination [None]
  - Educational problem [None]
  - Depression [None]
  - Drug abuse [None]
  - Anxiety [None]
  - Product quality issue [None]
  - Quality of life decreased [None]
  - Loss of employment [None]
  - Social problem [None]
  - Road traffic accident [None]
  - Overdose [None]
  - Tic [None]
  - Dyskinesia [None]
  - Emotional disorder [None]
  - Withdrawal syndrome [None]

NARRATIVE: CASE EVENT DATE: 19960101
